FAERS Safety Report 4975067-2 (Version None)
Quarter: 2006Q2

REPORT INFORMATION
  Report Type: 
  Country: None (occurrence: None)
  Receive Date: 20060418
  Receipt Date: 20060406
  Transmission Date: 20061013
  Serious: Yes (Other)
  Sender: FDA-Public Use
  Company Number: JP-ROCHE-444026

PATIENT
  Age: 3 Year
  Sex: Male

DRUGS (1)
  1. TAMIFLU [Suspect]
     Indication: INFLUENZA
     Route: 048
     Dates: start: 20060330, end: 20060401

REACTIONS (1)
  - DEPRESSED LEVEL OF CONSCIOUSNESS [None]
